FAERS Safety Report 12547625 (Version 6)
Quarter: 2016Q3

REPORT INFORMATION
  Report Type: Spontaneous
  Country: DE (occurrence: DE)
  Receive Date: 20160712
  Receipt Date: 20160914
  Transmission Date: 20161109
  Serious: Yes (Disabling)
  Sender: FDA-Public Use
  Company Number: DE-ROCHE-1792380

PATIENT
  Age: 59 Year
  Sex: Male

DRUGS (2)
  1. ENDOXAN [Suspect]
     Active Substance: CYCLOPHOSPHAMIDE
     Indication: ANTI-NEUTROPHIL CYTOPLASMIC ANTIBODY POSITIVE VASCULITIS
     Dosage: THREE ADMINISTRATIONS
     Route: 042
     Dates: start: 20150803, end: 20150914
  2. MABTHERA [Suspect]
     Active Substance: RITUXIMAB
     Indication: ANTI-NEUTROPHIL CYTOPLASMIC ANTIBODY POSITIVE VASCULITIS
     Dosage: TWO ADMINISTRATIONS
     Route: 042
     Dates: start: 20151012, end: 20151120

REACTIONS (1)
  - Biliary cast syndrome [Recovering/Resolving]

NARRATIVE: CASE EVENT DATE: 20150912
